FAERS Safety Report 21172332 (Version 2)
Quarter: 2022Q3

REPORT INFORMATION
  Report Type: Spontaneous
  Country: US (occurrence: US)
  Receive Date: 20220804
  Receipt Date: 20220906
  Transmission Date: 20221027
  Serious: Yes (Other)
  Sender: FDA-Public Use
  Company Number: US-BAYER-2022A108863

PATIENT
  Sex: Female

DRUGS (2)
  1. SKYLA [Suspect]
     Active Substance: LEVONORGESTREL
     Indication: Intra-uterine contraceptive device insertion
     Dosage: 14?G/DAY
     Route: 015
     Dates: start: 20200920
  2. SKYLA [Suspect]
     Active Substance: LEVONORGESTREL
     Indication: Polymenorrhoea

REACTIONS (1)
  - Embedded device [None]
